FAERS Safety Report 21602597 (Version 2)
Quarter: 2022Q4

REPORT INFORMATION
  Report Type: Spontaneous
  Country: ME (occurrence: ME)
  Receive Date: 20221116
  Receipt Date: 20221124
  Transmission Date: 20230113
  Serious: Yes (Other)
  Sender: FDA-Public Use
  Company Number: ME-SA-SAC20221107001351

PATIENT
  Age: 79 Year
  Sex: Female
  Weight: 78 kg

DRUGS (6)
  1. APIDRA [Suspect]
     Active Substance: INSULIN GLULISINE
     Indication: Type 2 diabetes mellitus
     Dosage: 6 IU, BEFORE MEAL AT 17H
     Route: 058
     Dates: start: 20221024, end: 20221026
  2. KLOMETOL [Concomitant]
     Dosage: UNK
  3. TOUJEO [Concomitant]
     Active Substance: INSULIN GLARGINE
     Dosage: 32 IU
     Dates: start: 20221024
  4. ASPIRIN [Concomitant]
     Active Substance: ASPIRIN
     Dosage: 75 MG, QD
     Route: 048
     Dates: start: 202209
  5. SODIUM CHLORIDE [Concomitant]
     Active Substance: SODIUM CHLORIDE
     Dosage: 500 ML
  6. BISOPROLOL FUMARATE [Concomitant]
     Active Substance: BISOPROLOL FUMARATE
     Indication: Hypertension
     Dosage: 2.5MG; OCCASIONALLY

REACTIONS (5)
  - Vomiting [Recovered/Resolved]
  - Disorientation [Recovered/Resolved]
  - Blood pressure abnormal [Unknown]
  - Rash [Recovered/Resolved]
  - Pruritus [Recovered/Resolved]

NARRATIVE: CASE EVENT DATE: 20221026
